FAERS Safety Report 14411805 (Version 1)
Quarter: 2018Q1

REPORT INFORMATION
  Report Type: Spontaneous
  Country: US (occurrence: US)
  Receive Date: 20180119
  Receipt Date: 20180119
  Transmission Date: 20180509
  Serious: No
  Sender: FDA-Public Use
  Company Number: US-AMNEAL PHARMACEUTICALS-2017AMN01010

PATIENT
  Sex: Female

DRUGS (1)
  1. ALOSETRON HYDROCHLORIDE. [Suspect]
     Active Substance: ALOSETRON HYDROCHLORIDE

REACTIONS (1)
  - Constipation [Unknown]
